FAERS Safety Report 16581720 (Version 2)
Quarter: 2019Q3

REPORT INFORMATION
  Report Type: Spontaneous
  Country: US (occurrence: US)
  Receive Date: 20190716
  Receipt Date: 20190821
  Transmission Date: 20191004
  Serious: Yes (Hospitalization, Other)
  Sender: FDA-Public Use
  Company Number: US-AMGEN-USASP2019112194

PATIENT
  Age: 55 Year
  Sex: Female
  Weight: 78.91 kg

DRUGS (27)
  1. DECADRON [Suspect]
     Active Substance: DEXAMETHASONE
     Indication: PLASMA CELL MYELOMA
     Dosage: 4-8 MILLIGRAM, QD
     Route: 048
     Dates: start: 20190507
  2. ATIVAN [Concomitant]
     Active Substance: LORAZEPAM
     Indication: INSOMNIA
  3. ALBUTEROL [SALBUTAMOL] [Concomitant]
     Active Substance: ALBUTEROL
     Indication: WHEEZING
  4. ZOVIRAX [Concomitant]
     Active Substance: ACYCLOVIR
     Dosage: 1 TABLET ORALLY 2 TIMES PER DAY
     Route: 048
  5. TYLENOL [Concomitant]
     Active Substance: ACETAMINOPHEN
     Indication: PAIN
     Dosage: TAKE 500-1000 MG BY MOUTH EVERY 6 HOURS AS NEEDED
     Route: 048
  6. ATIVAN [Concomitant]
     Active Substance: LORAZEPAM
     Indication: ANXIETY
  7. LIDOCAINE/PRILOCAINE [Concomitant]
     Active Substance: LIDOCAINE\PRILOCAINE
     Dosage: 2.5-2.5 % CREAM APPLY OVER PORT AREA
  8. POMALYST [Concomitant]
     Active Substance: POMALIDOMIDE
     Dosage: 4 MILLIGRAM, 1 CAPSULE BY MOUTH DAILY; D21 EVERY 28 DAY CYCLE
  9. METHYLPREDNISOLONE. [Concomitant]
     Active Substance: METHYLPREDNISOLONE
     Dosage: 4 MILLIGRAM, 5 TABLET ONCE
     Route: 048
  10. NORCO [Concomitant]
     Active Substance: ACETAMINOPHEN\HYDROCODONE BITARTRATE
     Indication: PAIN
     Dosage: 5-325 MG TABLET 1-2 EVERY 4-6 HOURS AS NEEDED
     Route: 048
  11. ALBUTEROL [SALBUTAMOL] [Concomitant]
     Active Substance: ALBUTEROL
     Indication: DYSPNOEA
     Dosage: UNK
  12. PROCHLORPERAZINE. [Concomitant]
     Active Substance: PROCHLORPERAZINE
     Indication: NAUSEA
     Dosage: 5 MG TABLET 1-2 EVERY 4 TO 6 HOURS AS NEEDED
     Route: 048
  13. PROTONIX [OMEPRAZOLE] [Concomitant]
     Active Substance: OMEPRAZOLE
     Dosage: 40 MILLIGRAM , DAILY
     Route: 048
  14. XARELTO [Concomitant]
     Active Substance: RIVAROXABAN
     Dosage: 10 MILLIGRAM
     Route: 048
  15. DARATUMUMAB [Suspect]
     Active Substance: DARATUMUMAB
     Indication: PLASMA CELL MYELOMA
     Dosage: UNK
     Route: 065
     Dates: start: 20190507
  16. SLOW-MAG [Concomitant]
     Active Substance: MAGNESIUM CHLORIDE
     Dosage: 70 MILLIGRAM, QD
  17. NEURONTIN [Concomitant]
     Active Substance: GABAPENTIN
     Dosage: 100 MILLIGRAM, BID
  18. KYPROLIS [Suspect]
     Active Substance: CARFILZOMIB
     Indication: PLASMA CELL MYELOMA
     Dosage: 20 MILLIGRAM/SQ. METER (38 MILLIGRAM)
     Route: 042
     Dates: start: 20190507, end: 20190508
  19. FENTANYL. [Concomitant]
     Active Substance: FENTANYL
     Dosage: 12 MCG/HR PATCH 72 HOUR 2 PATCH; EVERY 72 HOURS
     Route: 062
  20. CELEBREX [Concomitant]
     Active Substance: CELECOXIB
     Dosage: 1 CAPSULE ORALLY 2 TIMES PER DAY
     Route: 048
  21. COMPAZINE [Concomitant]
     Active Substance: PROCHLORPERAZINE MALEATE
     Dosage: TAKE 1 TABLET BY MOUTH EVERY 4 HOURS AS NEEDED
  22. ATIVAN [Concomitant]
     Active Substance: LORAZEPAM
     Indication: NAUSEA
     Dosage: 0.5 MILLIGRAM, 1 TABLET ORALLY EVERY 4 HOURS AS NEEDED
     Route: 048
  23. SINGULAIR [Concomitant]
     Active Substance: MONTELUKAST SODIUM
     Dosage: ONE TABLET AT BEDTIME FOR 3 DAYS
     Route: 048
  24. SYMBICORT [Concomitant]
     Active Substance: BUDESONIDE\FORMOTEROL FUMARATE DIHYDRATE
     Dosage: 160-4.5 MCG/ACTUATION HFA AEROSOL INHALER 2 INHALATION INHALED 2 TIMES PER DAY
  25. ONDANSETRON [Concomitant]
     Active Substance: ONDANSETRON
     Indication: NAUSEA
     Dosage: 8 MG TABLET ONE HALF TO ONE EVERY 8 HOURS AS NEEDED
     Route: 048
  26. MELATONIN [Concomitant]
     Active Substance: MELATONIN
     Dosage: 1 MILLIGRAM, AS NECESSARY
     Route: 048
  27. ANTIVERT [Concomitant]
     Active Substance: MECLIZINE HYDROCHLORIDE
     Dosage: 25 MG BY MOUTH 3 TIMES DAILY AS NEEDED
     Route: 048

REACTIONS (7)
  - Transient ischaemic attack [Unknown]
  - Cerebrovascular accident [Not Recovered/Not Resolved]
  - Meningioma [Unknown]
  - Hyperlipidaemia [Unknown]
  - Off label use [Unknown]
  - Reversible cerebral vasoconstriction syndrome [Unknown]
  - Thrombocytopenia [Unknown]

NARRATIVE: CASE EVENT DATE: 2019
